FAERS Safety Report 24142652 (Version 1)
Quarter: 2024Q3

REPORT INFORMATION
  Report Type: Spontaneous
  Country: US (occurrence: None)
  Receive Date: 20240726
  Receipt Date: 20240726
  Transmission Date: 20241016
  Serious: Yes (Disabling, Other)
  Sender: Public
  Company Number: None

PATIENT
  Age: 56 Year
  Sex: Female
  Weight: 62.1 kg

DRUGS (14)
  1. NEXLETOL [Suspect]
     Active Substance: BEMPEDOIC ACID
     Indication: Blood cholesterol increased
     Dosage: OTHER QUANTITY : 1 TABLET(S);?FREQUENCY : DAILY;?
     Route: 048
     Dates: start: 20240418, end: 20240629
  2. LOSARTAN [Concomitant]
     Active Substance: LOSARTAN
  3. AMLODIPINE [Concomitant]
     Active Substance: AMLODIPINE BESYLATE
  4. ESTRADIOL [Concomitant]
     Active Substance: ESTRADIOL
  5. PROGESTERONE [Concomitant]
     Active Substance: PROGESTERONE
  6. OMEPRAZOLE [Concomitant]
     Active Substance: OMEPRAZOLE
  7. NABUMETONE [Concomitant]
     Active Substance: NABUMETONE
  8. PROBIOTICS NOS [Concomitant]
     Active Substance: PROBIOTICS NOS
  9. CFU [Concomitant]
  10. Fermented Tuneric [Concomitant]
  11. Raw B-Complex [Concomitant]
  12. Woman^s 55+ Multivitamin [Concomitant]
  13. Ester C [Concomitant]
  14. WholeMega* Fish Oil [Concomitant]

REACTIONS (6)
  - Arthralgia [None]
  - Gait disturbance [None]
  - Dizziness exertional [None]
  - Lupus-like syndrome [None]
  - Tendon rupture [None]
  - Impaired quality of life [None]

NARRATIVE: CASE EVENT DATE: 20240614
